FAERS Safety Report 7016526-0 (Version None)
Quarter: 2010Q3

REPORT INFORMATION
  Report Type: 
  Country: None (occurrence: None)
  Receive Date: 20100927
  Receipt Date: 20100922
  Transmission Date: 20110219
  Serious: Yes (Hospitalization)
  Sender: FDA-Public Use
  Company Number: A0836654A

PATIENT
  Age: 63 Year
  Sex: Male
  Weight: 99.5 kg

DRUGS (6)
  1. AVANDIA [Suspect]
     Dosage: 2MG PER DAY
     Route: 048
     Dates: start: 20031015
  2. AMBIEN [Concomitant]
  3. COZAAR [Concomitant]
  4. NEXIUM [Concomitant]
  5. VALIUM [Concomitant]
  6. VERAPAMIL [Concomitant]

REACTIONS (1)
  - ISCHAEMIC STROKE [None]
